FAERS Safety Report 16804277 (Version 1)
Quarter: 2019Q3

REPORT INFORMATION
  Report Type: Spontaneous
  Country: SE (occurrence: SE)
  Receive Date: 20190913
  Receipt Date: 20190913
  Transmission Date: 20191005
  Serious: Yes (Hospitalization)
  Sender: FDA-Public Use
  Company Number: SE-TEVA-2019-SE-1106084

PATIENT
  Age: 22 Year
  Sex: Female

DRUGS (3)
  1. ELVANSE [Suspect]
     Active Substance: LISDEXAMFETAMINE DIMESYLATE
     Dosage: 80-100 MG TOTAL, CONFLICTING INFORMATION IN THE REPORT.
     Route: 048
     Dates: start: 20190427, end: 20190427
  2. FLUOXETINE [Suspect]
     Active Substance: FLUOXETINE HYDROCHLORIDE
     Dosage: 6 OR 20 MG, A TOTAL OF 120 MG
     Dates: start: 20190427, end: 20190427
  3. LERGIGAN (PROMETHAZINE HYDROCHLORIDE) [Suspect]
     Active Substance: PROMETHAZINE HYDROCHLORIDE
     Dosage: 5 PCS, A TOTAL OF 125 MG
     Route: 048
     Dates: start: 20190427, end: 20190427

REACTIONS (3)
  - Fatigue [Unknown]
  - Intentional overdose [Unknown]
  - Suicide attempt [Unknown]

NARRATIVE: CASE EVENT DATE: 20190427
